FAERS Safety Report 6082535-1 (Version None)
Quarter: 2009Q1

REPORT INFORMATION
  Report Type: 
  Country: None (occurrence: None)
  Receive Date: 20090218
  Receipt Date: 20090212
  Transmission Date: 20090719
  Serious: Yes (Hospitalization, Other)
  Sender: FDA-Public Use
  Company Number: US-ABBOTT-09P-163-0501846-00

PATIENT
  Sex: Male
  Weight: 81.72 kg

DRUGS (5)
  1. HUMIRA [Suspect]
     Indication: CROHN'S DISEASE
     Dates: start: 20070601, end: 20080510
  2. HUMIRA [Suspect]
     Indication: ANKYLOSING SPONDYLITIS
     Dates: start: 20080801, end: 20080912
  3. HUMIRA [Suspect]
     Dates: start: 20081006, end: 20081201
  4. HUMIRA [Suspect]
     Dates: start: 20081201, end: 20081231
  5. TPN [Concomitant]
     Indication: DRUG USE FOR UNKNOWN INDICATION
     Dates: start: 20080501, end: 20080910

REACTIONS (8)
  - ACUTE RESPIRATORY DISTRESS SYNDROME [None]
  - CATHETER SEPSIS [None]
  - INTESTINAL RESECTION [None]
  - PAIN [None]
  - POST PROCEDURAL FISTULA [None]
  - RENAL FAILURE [None]
  - RHINORRHOEA [None]
  - WOUND DEHISCENCE [None]
